FAERS Safety Report 16584072 (Version 1)
Quarter: 2019Q3

REPORT INFORMATION
  Report Type: Report from Study
  Country: ES (occurrence: ES)
  Receive Date: 20190717
  Receipt Date: 20190717
  Transmission Date: 20191004
  Serious: Yes (Death, Hospitalization)
  Sender: FDA-Public Use
  Company Number: ES-ACCORD-138950

PATIENT
  Age: 90 Year
  Sex: Male

DRUGS (1)
  1. CLOPIDOGREL [Suspect]
     Active Substance: CLOPIDOGREL BISULFATE
     Indication: CARDIAC VALVE PROSTHESIS USER
     Dosage: DOSAGE TEXT: 75 MG EVERY 24 HOURS
     Route: 048
     Dates: start: 20090914, end: 20180910

REACTIONS (3)
  - Off label use [Unknown]
  - Anaemia [Recovered/Resolved]
  - Gastric ulcer haemorrhage [Recovered/Resolved]

NARRATIVE: CASE EVENT DATE: 20180910
